FAERS Safety Report 9030476 (Version 1)
Quarter: 2013Q1

REPORT INFORMATION
  Report Type: Spontaneous
  Country: US (occurrence: US)
  Receive Date: 20130122
  Receipt Date: 20130122
  Transmission Date: 20140127
  Serious: Yes (Death)
  Sender: FDA-Public Use
  Company Number: US-UCBSA-075435

PATIENT
  Age: 62 Year
  Sex: Male

DRUGS (9)
  1. VIMPAT [Suspect]
     Indication: EPILEPSY
     Dosage: ONE YEAR AGO
  2. VIMPAT [Suspect]
     Indication: PARTIAL SEIZURES WITH SECONDARY GENERALISATION
     Dosage: ONE YEAR AGO
  3. VIMPAT [Suspect]
     Indication: EPILEPSY
     Dosage: AT THE TIME OF EVENT
  4. VIMPAT [Suspect]
     Indication: PARTIAL SEIZURES WITH SECONDARY GENERALISATION
     Dosage: AT THE TIME OF EVENT
  5. MIRTAZAPINE [Concomitant]
     Indication: DEPRESSION
     Dosage: 30 MG DAILY
  6. LIPITOR [Concomitant]
     Indication: HYPERCHOLESTEROLAEMIA
     Dosage: 20 MG DAILY
  7. EFFEXOR [Concomitant]
     Indication: DEPRESSION
  8. AMLODIPINE/BENAZAPRIL [Concomitant]
     Indication: HYPERTENSION
     Dosage: 5/20 MG BID
  9. TOPAMAX [Concomitant]
     Indication: CONVULSION

REACTIONS (3)
  - Death [Fatal]
  - Convulsion [Unknown]
  - Overdose [Unknown]
